FAERS Safety Report 14974365 (Version 1)
Quarter: 2018Q2

REPORT INFORMATION
  Report Type: Spontaneous
  Country: US (occurrence: US)
  Receive Date: 20180514
  Receipt Date: 20180514
  Transmission Date: 20180711
  Serious: Yes (Hospitalization)
  Sender: FDA-Public Use
  Company Number: None

PATIENT
  Age: 82 Year
  Sex: Male

DRUGS (1)
  1. ISOVUE 370 [Suspect]
     Active Substance: IOPAMIDOL
     Indication: RENAL SCAN
     Dates: start: 20180215, end: 20180215

REACTIONS (5)
  - Anaphylactic reaction [None]
  - Respiratory failure [None]
  - Contrast media reaction [None]
  - Hypersensitivity [None]
  - Pulmonary oedema [None]

NARRATIVE: CASE EVENT DATE: 20180215
